FAERS Safety Report 5422804-9 (Version None)
Quarter: 2007Q3

REPORT INFORMATION
  Report Type: 
  Country: None (occurrence: None)
  Receive Date: 20070822
  Receipt Date: 20070810
  Transmission Date: 20080115
  Serious: Yes (Other)
  Sender: FDA-Public Use
  Company Number: AU-PFIZER INC-2007067162

PATIENT
  Sex: Female

DRUGS (3)
  1. XALATAN [Suspect]
  2. TIMOLOL MALEATE [Suspect]
  3. HYDROCORTISONE [Concomitant]
     Route: 047

REACTIONS (3)
  - BRONCHITIS [None]
  - DYSPHONIA [None]
  - EYE INFECTION [None]
